FAERS Safety Report 17316379 (Version 1)
Quarter: 2020Q1

REPORT INFORMATION
  Report Type: Spontaneous
  Country: US (occurrence: US)
  Receive Date: 20200124
  Receipt Date: 20200124
  Transmission Date: 20200409
  Serious: Yes (Life-Threatening, Hospitalization, Other)
  Sender: FDA-Public Use
  Company Number: US-HIKMA PHARMACEUTICALS USA INC.-US-H14001-20-50412

PATIENT
  Age: 60 Year
  Sex: Female

DRUGS (1)
  1. METHOTREXATE. [Suspect]
     Active Substance: METHOTREXATE
     Indication: PRODUCT USED FOR UNKNOWN INDICATION
     Route: 065

REACTIONS (11)
  - Haemoglobin decreased [Unknown]
  - Diarrhoea [Unknown]
  - Haematemesis [Unknown]
  - Enteritis [Unknown]
  - Toxicity to various agents [Unknown]
  - Sepsis [Unknown]
  - Inappropriate schedule of product administration [Unknown]
  - Pancytopenia [Recovered/Resolved]
  - Ischaemic stroke [Unknown]
  - Multiple organ dysfunction syndrome [Unknown]
  - Paralysis [Unknown]
